FAERS Safety Report 4852142-4 (Version None)
Quarter: 2005Q4

REPORT INFORMATION
  Report Type: 
  Country: None (occurrence: None)
  Receive Date: 20051123
  Receipt Date: 20050810
  Transmission Date: 20060501
  Serious: No
  Sender: FDA-Public Use
  Company Number: 216861

PATIENT
  Age: 40 Year
  Sex: Female
  Weight: 137.4 kg

DRUGS (3)
  1. RAPTIVA [Suspect]
     Indication: PSORIASIS
     Dates: start: 20040101
  2. ATIVAN [Concomitant]
  3. ANTIPSYCHOTIC NOS (ANTIPSYCHOTIC NOS) [Concomitant]

REACTIONS (1)
  - ARTHRITIS [None]
